FAERS Safety Report 18000605 (Version 1)
Quarter: 2020Q3

REPORT INFORMATION
  Report Type: Spontaneous
  Country: NL (occurrence: NL)
  Receive Date: 20200709
  Receipt Date: 20200709
  Transmission Date: 20201103
  Serious: Yes (Other)
  Sender: FDA-Public Use
  Company Number: NL-AMERICAN REGENT INC-20170219

PATIENT
  Age: 60 Year
  Sex: Male
  Weight: 83 kg

DRUGS (25)
  1. MONOFER [Suspect]
     Active Substance: IRON ISOMALTOSIDE 1000
     Indication: RESTLESS LEGS SYNDROME
     Dosage: 100 MG/ML (1 DOSAGE FORMS, 1 TOTAL)
     Route: 042
     Dates: start: 2016
  2. FUSIDINEZUUR [Concomitant]
     Indication: PRODUCT USED FOR UNKNOWN INDICATION
     Dosage: 20 MG/G (1 DOSAGE FORM)
     Route: 065
  3. NEUPRO [Concomitant]
     Active Substance: ROTIGOTINE
     Indication: PRODUCT USED FOR UNKNOWN INDICATION
     Dosage: 1 DOSAGE FORMS (1 DOSAGE FORMS,1 IN 1 D)
     Route: 065
  4. FOSTER [Concomitant]
     Active Substance: BECLOMETHASONE\FORMOTEROL
     Indication: PRODUCT USED FOR UNKNOWN INDICATION
     Dosage: 4 DOSAGE FORM, QD
  5. MAGNESIUM SULFATE. [Concomitant]
     Active Substance: MAGNESIUM SULFATE
     Indication: PRODUCT USED FOR UNKNOWN INDICATION
     Dosage: 500 MILLIGRAM, BID
     Route: 065
  6. FERINJECT [Suspect]
     Active Substance: FERRIC CARBOXYMALTOSE
     Indication: RESTLESS LEGS SYNDROME
     Dosage: 500 MG, 1 TOTAL
     Dates: start: 201512
  7. LYRICA [Concomitant]
     Active Substance: PREGABALIN
     Indication: PRODUCT USED FOR UNKNOWN INDICATION
     Dosage: 300 MILLIGRAM, QD
     Route: 048
  8. MAGNESIUM SULFATE. [Concomitant]
     Active Substance: MAGNESIUM SULFATE
     Dosage: 1000 MILLIGRAM, QD
  9. MONOFER [Suspect]
     Active Substance: IRON ISOMALTOSIDE 1000
     Dosage: 100 MG/ML FALCON 5 ML (1 DOSAGE FORMS)
     Route: 065
     Dates: start: 201512
  10. KETOCONAZOL [Concomitant]
     Active Substance: KETOCONAZOLE
     Indication: PRODUCT USED FOR UNKNOWN INDICATION
     Dosage: 20 MG/G (1 DOSAGE FORM)
     Route: 065
  11. PALEXIA [Concomitant]
     Active Substance: TAPENTADOL HYDROCHLORIDE
     Dosage: 400 MILLIGRAM, QD
     Route: 065
  12. TRIAMCINOLON                       /00031902/ [Concomitant]
     Indication: PRODUCT USED FOR UNKNOWN INDICATION
     Dosage: 0.1% PER DF
     Route: 065
  13. ANDROSKAT [Concomitant]
     Indication: PRODUCT USED FOR UNKNOWN INDICATION
     Dosage: 120DO 2X DAY 2DF
     Route: 065
  14. VENTOLIN [Concomitant]
     Active Substance: ALBUTEROL SULFATE
     Indication: PRODUCT USED FOR UNKNOWN INDICATION
     Dosage: 0.5 MG/G (200 MCG,4 IN 1 D)
  15. NEXIUM [Concomitant]
     Active Substance: ESOMEPRAZOLE MAGNESIUM
     Indication: PRODUCT USED FOR UNKNOWN INDICATION
     Dosage: DOSE WAS FIRST 2X DAILY (40 MG,1 IN 1 D)
     Route: 048
  16. PALEXIA [Concomitant]
     Active Substance: TAPENTADOL HYDROCHLORIDE
     Dosage: 200 MILLIGRAM
     Route: 048
  17. NACLOF [Concomitant]
     Indication: PRODUCT USED FOR UNKNOWN INDICATION
     Dosage: 2 GTT DROPS, QD
  18. CALCI CHEW D3 [Concomitant]
     Active Substance: CALCIUM CARBONATE\CHOLECALCIFEROL
     Indication: PRODUCT USED FOR UNKNOWN INDICATION
     Dosage: 500 MILLIGRAM, QD
     Route: 048
  19. BETAMETHASONE. [Concomitant]
     Active Substance: BETAMETHASONE
     Indication: PRODUCT USED FOR UNKNOWN INDICATION
     Dosage: UNK
     Route: 065
  20. PARACETAMOL/CODEINE [Concomitant]
     Active Substance: ACETAMINOPHEN\CODEINE PHOSPHATE
     Indication: PRODUCT USED FOR UNKNOWN INDICATION
     Dosage: 500/10MG (4 DOSAGE FORMS, 1 IN 1 DAY)
     Route: 048
  21. PALEXIA [Concomitant]
     Active Substance: TAPENTADOL HYDROCHLORIDE
     Indication: PRODUCT USED FOR UNKNOWN INDICATION
     Dosage: 50 MILLIGRAM, QD
     Route: 065
  22. VASELINE                           /01007601/ [Concomitant]
     Indication: PRODUCT USED FOR UNKNOWN INDICATION
     Dosage: 2 DOSAGE FORMS (2 DOSAGE FORMS,1 IN 1 D)
     Route: 065
  23. DIPROLENE [Concomitant]
     Active Substance: BETAMETHASONE DIPROPIONATE
     Indication: PRODUCT USED FOR UNKNOWN INDICATION
     Dosage: 0.5 MILLIGRAM PER GRAM, QD
     Route: 065
  24. DIPROLENE [Concomitant]
     Active Substance: BETAMETHASONE DIPROPIONATE
     Dosage: 0.5 MILLIGRAM PER GRAM
  25. VENTOLIN [Concomitant]
     Active Substance: ALBUTEROL SULFATE
     Dosage: INHALATION POWDER (1 DOSAGE FORMS)

REACTIONS (3)
  - Inguinal hernia repair [Unknown]
  - Product use in unapproved indication [Unknown]
  - Blood creatine phosphokinase increased [Recovered/Resolved]

NARRATIVE: CASE EVENT DATE: 201512
